FAERS Safety Report 4908110-7 (Version None)
Quarter: 2006Q1

REPORT INFORMATION
  Report Type: 
  Country: None (occurrence: None)
  Receive Date: 20060113
  Receipt Date: 20050929
  Transmission Date: 20060701
  Serious: No
  Sender: FDA-Public Use
  Company Number: 2005SP003296

PATIENT
  Age: 60 Year
  Sex: Female

DRUGS (5)
  1. LUNESTA [Suspect]
     Indication: INSOMNIA
     Dosage: 2 MG; HS; ORAL
     Route: 048
     Dates: start: 20050908
  2. AMBIEN [Concomitant]
  3. SIMVASTATIN [Concomitant]
  4. FOSAMAX [Concomitant]
  5. FEMARA [Concomitant]

REACTIONS (1)
  - DRUG INEFFECTIVE [None]
